FAERS Safety Report 18192948 (Version 1)
Quarter: 2020Q3

REPORT INFORMATION
  Report Type: Spontaneous
  Country: US (occurrence: US)
  Receive Date: 20200825
  Receipt Date: 20200825
  Transmission Date: 20201103
  Serious: No
  Sender: FDA-Public Use
  Company Number: US-ASTELLAS-2019US049291

PATIENT
  Age: 11 Year
  Sex: Male

DRUGS (2)
  1. AMBISOME [Suspect]
     Active Substance: AMPHOTERICIN B
     Indication: CYSTIC FIBROSIS
     Route: 050
     Dates: start: 20190927
  2. PULMOZYME [Suspect]
     Active Substance: DORNASE ALFA
     Indication: CYSTIC FIBROSIS
     Route: 050
     Dates: start: 20190826

REACTIONS (2)
  - Cough [Unknown]
  - Off label use [Not Recovered/Not Resolved]
